FAERS Safety Report 8841842 (Version 3)
Quarter: 2012Q4

REPORT INFORMATION
  Report Type: 
  Country: JP (occurrence: JP)
  Receive Date: 20121016
  Receipt Date: 20121124
  Transmission Date: 20130627
  Serious: Yes (Other)
  Sender: FDA-Public Use
  Company Number: JP-SANOFI-AVENTIS-2012SA074872

PATIENT
  Age: 44 Year
  Sex: Female

DRUGS (6)
  1. LASIX [Suspect]
     Indication: DRUG USE FOR UNKNOWN INDICATION
     Route: 048
     Dates: start: 20090120
  2. BAYASPIRIN [Concomitant]
     Route: 048
     Dates: start: 20090120
  3. PARAMIDIN [Concomitant]
     Route: 048
     Dates: start: 20110817
  4. GASTER [Concomitant]
     Route: 048
     Dates: start: 20100203
  5. WARFARIN [Concomitant]
     Route: 048
     Dates: start: 20090120
  6. MEVALOTIN [Concomitant]
     Route: 048
     Dates: start: 20100324

REACTIONS (3)
  - Loss of consciousness [Recovered/Resolved]
  - Dizziness [Recovered/Resolved]
  - Dizziness postural [Not Recovered/Not Resolved]
